FAERS Safety Report 9052039 (Version 1)
Quarter: 2013Q1

REPORT INFORMATION
  Report Type: Spontaneous
  Country: US (occurrence: None)
  Receive Date: 20130131
  Receipt Date: 20130131
  Transmission Date: 20140127
  Serious: Yes (Hospitalization)
  Sender: FDA-Public Use
  Company Number: None

PATIENT
  Age: 94 Year
  Sex: Female
  Weight: 65 kg

DRUGS (6)
  1. XARELTO [Suspect]
     Indication: ATRIAL FIBRILLATION
     Dosage: RECENT STARTED
     Route: 048
     Dates: start: 200611
  2. WARFARIN [Suspect]
     Indication: ATRIAL FIBRILLATION
     Dosage: CHRONIC?MF/TWTHSS
     Route: 048
     Dates: end: 200511
  3. LISINOPRIL [Concomitant]
  4. APAP/CODEINE [Concomitant]
  5. CARVEDIOLOL [Concomitant]
  6. LASIX [Concomitant]

REACTIONS (5)
  - Hip fracture [None]
  - Fall [None]
  - Haemorrhagic anaemia [None]
  - International normalised ratio decreased [None]
  - Coagulopathy [None]
